FAERS Safety Report 15878947 (Version 2)
Quarter: 2019Q1

REPORT INFORMATION
  Report Type: Spontaneous
  Country: US (occurrence: US)
  Receive Date: 20190128
  Receipt Date: 20190209
  Transmission Date: 20190417
  Serious: No
  Sender: FDA-Public Use
  Company Number: US-JNJFOC-20190102406

PATIENT
  Sex: Female
  Weight: 68.49 kg

DRUGS (2)
  1. TYLENOL 8 HR ARTHRITIS PAIN [Suspect]
     Active Substance: ACETAMINOPHEN
     Route: 048
  2. TYLENOL 8 HR ARTHRITIS PAIN [Suspect]
     Active Substance: ACETAMINOPHEN
     Indication: ARTHRALGIA
     Dosage: SOMETIMES 1-2 CAPLETS LESS THAN 8 HOURS.
     Route: 048

REACTIONS (3)
  - Inappropriate schedule of product administration [Unknown]
  - Urinary incontinence [Not Recovered/Not Resolved]
  - Incorrect dose administered [Unknown]
